FAERS Safety Report 16191904 (Version 2)
Quarter: 2019Q2

REPORT INFORMATION
  Report Type: Report from Study
  Country: ES (occurrence: ES)
  Receive Date: 20190412
  Receipt Date: 20190626
  Transmission Date: 20190711
  Serious: Yes (Hospitalization)
  Sender: FDA-Public Use
  Company Number: ES-BRISTOL-MYERS SQUIBB COMPANY-BMS-2019-036145

PATIENT
  Age: 42 Year
  Sex: Male

DRUGS (2)
  1. NIVOLUMAB [Suspect]
     Active Substance: NIVOLUMAB
     Indication: EWING^S SARCOMA
     Dosage: 250 MILLIGRAM, Q2WK
     Route: 042
     Dates: start: 20190123, end: 20190320
  2. IPILIMUMAB [Suspect]
     Active Substance: IPILIMUMAB
     Indication: EWING^S SARCOMA
     Dosage: 79 MILLIGRAM, Q6WK
     Route: 042
     Dates: start: 20190123, end: 20190306

REACTIONS (1)
  - Dyspnoea [Recovered/Resolved]

NARRATIVE: CASE EVENT DATE: 20190401
